FAERS Safety Report 6686482-3 (Version None)
Quarter: 2010Q2

REPORT INFORMATION
  Report Type: 
  Country: None (occurrence: None)
  Receive Date: 20100419
  Receipt Date: 20100409
  Transmission Date: 20101027
  Serious: Yes (Hospitalization)
  Sender: FDA-Public Use
  Company Number: ES-ROCHE-692677

PATIENT
  Sex: Male
  Weight: 94 kg

DRUGS (9)
  1. TOCILIZUMAB [Suspect]
     Indication: RHEUMATOID ARTHRITIS
     Dosage: STARTING DOSE: 8 MG/KG
     Route: 042
     Dates: start: 20090929
  2. TOCILIZUMAB [Suspect]
     Route: 042
     Dates: start: 20091026
  3. TOCILIZUMAB [Suspect]
     Route: 042
     Dates: start: 20091117
  4. TOCILIZUMAB [Suspect]
     Route: 042
     Dates: start: 20091221
  5. TOCILIZUMAB [Suspect]
     Dosage: LAST DOSE PRIOR TO SAE: 12 JANUARY 2010, PERMANENTLY DISCONTINUED
     Route: 042
     Dates: start: 20100112, end: 20100216
  6. LEFLUNOMIDE [Concomitant]
     Route: 048
     Dates: start: 20090401, end: 20100216
  7. PREDNISONE [Concomitant]
     Route: 048
     Dates: start: 20081119, end: 20100216
  8. OMEPRAZOLE [Concomitant]
     Dates: start: 20080929
  9. INDOMETHACIN [Concomitant]
     Route: 048
     Dates: start: 20081119

REACTIONS (1)
  - LARYNGEAL CANCER [None]
